FAERS Safety Report 10742060 (Version 1)
Quarter: 2015Q1

REPORT INFORMATION
  Report Type: Spontaneous
  Country: FR (occurrence: FR)
  Receive Date: 20150127
  Receipt Date: 20150127
  Transmission Date: 20150721
  Serious: Yes (Life-Threatening, Hospitalization)
  Sender: FDA-Public Use
  Company Number: FR-PFIZER INC-2015028885

PATIENT
  Age: 34 Year
  Sex: Female

DRUGS (11)
  1. TAZOCILLINE [Suspect]
     Active Substance: PIPERACILLIN SODIUM\TAZOBACTAM SODIUM
     Indication: BACTERAEMIA
     Dosage: UNK
     Dates: start: 20141209, end: 20141221
  2. FLAGYL [Concomitant]
     Active Substance: METRONIDAZOLE\METRONIDAZOLE HYDROCHLORIDE
     Indication: BACTERAEMIA
     Dosage: UNK
     Dates: start: 20141208, end: 20141208
  3. SPECIAFOLDINE [Concomitant]
     Active Substance: FOLIC ACID
  4. MEROPENEM. [Interacting]
     Active Substance: MEROPENEM
     Indication: BACTERAEMIA
     Dosage: UNK
     Dates: start: 20141230, end: 20150108
  5. ROCEPHINE [Concomitant]
     Active Substance: CEFTRIAXONE SODIUM
     Indication: BACTERAEMIA
     Dosage: UNK
     Dates: start: 20141208, end: 20141208
  6. FLAGYL [Concomitant]
     Active Substance: METRONIDAZOLE\METRONIDAZOLE HYDROCHLORIDE
     Indication: URINARY TRACT INFECTION
  7. ULCAR [Concomitant]
     Active Substance: SUCRALFATE
  8. MEROPENEM. [Interacting]
     Active Substance: MEROPENEM
     Indication: URINARY TRACT INFECTION
  9. DUPHALAC [Concomitant]
     Active Substance: LACTULOSE
  10. TAZOCILLINE [Interacting]
     Active Substance: PIPERACILLIN SODIUM\TAZOBACTAM SODIUM
     Indication: URINARY TRACT INFECTION
  11. ROCEPHINE [Concomitant]
     Active Substance: CEFTRIAXONE SODIUM
     Indication: URINARY TRACT INFECTION

REACTIONS (2)
  - Drug interaction [Unknown]
  - Thrombocytopenia [Unknown]

NARRATIVE: CASE EVENT DATE: 20141221
